FAERS Safety Report 7701468-5 (Version None)
Quarter: 2011Q3

REPORT INFORMATION
  Report Type: 
  Country: None (occurrence: None)
  Receive Date: 20110822
  Receipt Date: 20110816
  Transmission Date: 20111222
  Serious: Yes (Other)
  Sender: FDA-Public Use
  Company Number: US-PFIZER INC-2011189651

PATIENT
  Sex: Female
  Weight: 77.098 kg

DRUGS (2)
  1. ZOLOFT [Suspect]
     Indication: DEPRESSION
     Dosage: UNK
     Route: 048
  2. ZOLOFT [Suspect]
     Dosage: 150MG DAILY

REACTIONS (2)
  - VITAMIN D DECREASED [None]
  - COELIAC DISEASE [None]
